FAERS Safety Report 6993676-6 (Version None)
Quarter: 2010Q3

REPORT INFORMATION
  Report Type: 
  Country: None (occurrence: None)
  Receive Date: 20100917
  Receipt Date: 20100331
  Transmission Date: 20110219
  Serious: Yes (Hospitalization)
  Sender: FDA-Public Use
  Company Number: US-ASTRAZENECA-2009SE17835

PATIENT
  Age: 711 Month
  Weight: 84.8 kg

DRUGS (12)
  1. SEROQUEL [Suspect]
     Indication: BIPOLAR DISORDER
     Route: 048
     Dates: start: 20080101
  2. SEROQUEL [Suspect]
     Route: 048
     Dates: start: 20080401
  3. SEROQUEL [Suspect]
     Route: 048
     Dates: start: 20080801
  4. SEROQUEL [Suspect]
     Route: 048
     Dates: start: 20080901
  5. SEROQUEL [Suspect]
     Route: 048
     Dates: start: 20081101
  6. EFFEXOR XR [Concomitant]
     Indication: BIPOLAR DISORDER
     Dates: start: 20080101
  7. ATENOLOL [Concomitant]
     Indication: BIPOLAR DISORDER
     Dates: start: 20080101
  8. TRAZODONE HCL [Concomitant]
     Indication: BIPOLAR DISORDER
     Dates: start: 20080101
  9. REMERON [Concomitant]
     Indication: BIPOLAR DISORDER
     Dates: start: 20080101
  10. ASPIRIN [Concomitant]
     Dosage: ONCE A DAY
     Dates: start: 20080901
  11. HYDROCHLOROTHIAZIDE [Concomitant]
     Dates: start: 20080901
  12. LYRICA [Concomitant]
     Dates: start: 20080901

REACTIONS (4)
  - DIABETES MELLITUS INADEQUATE CONTROL [None]
  - HEPATIC FUNCTION ABNORMAL [None]
  - HYPERGLYCAEMIA [None]
  - TYPE 2 DIABETES MELLITUS [None]
